FAERS Safety Report 7193098-1 (Version None)
Quarter: 2010Q4

REPORT INFORMATION
  Report Type: 
  Country: None (occurrence: None)
  Receive Date: 20101223
  Receipt Date: 20101217
  Transmission Date: 20110411
  Serious: Yes (Hospitalization)
  Sender: FDA-Public Use
  Company Number: US-MERCK-1012USA02886

PATIENT
  Age: 78 Year
  Sex: Male

DRUGS (1)
  1. JANUVIA [Suspect]
     Indication: TYPE 2 DIABETES MELLITUS
     Route: 048

REACTIONS (8)
  - BLOOD GLUCOSE INCREASED [None]
  - BRADYCARDIA [None]
  - DIALYSIS [None]
  - FALL [None]
  - GASTRIC DISORDER [None]
  - LOSS OF CONSCIOUSNESS [None]
  - PANCREATITIS [None]
  - RENAL IMPAIRMENT [None]
